FAERS Safety Report 6741216-9 (Version None)
Quarter: 2010Q2

REPORT INFORMATION
  Report Type: 
  Country: None (occurrence: None)
  Receive Date: 20100526
  Receipt Date: 20100513
  Transmission Date: 20101027
  Serious: Yes (Other)
  Sender: FDA-Public Use
  Company Number: PHHY2010AU31098

PATIENT
  Sex: Male

DRUGS (3)
  1. CLOZARIL [Suspect]
     Dosage: 650 MG, UNK
     Dates: start: 19930107
  2. JEZIL [Concomitant]
  3. COVERSYL [Concomitant]
     Indication: BLOOD PRESSURE

REACTIONS (3)
  - ASPIRATION BONE MARROW [None]
  - CHRONIC MYELOID LEUKAEMIA [None]
  - NEUTROPHIL COUNT INCREASED [None]
